FAERS Safety Report 25452402 (Version 1)
Quarter: 2025Q2

REPORT INFORMATION
  Report Type: Spontaneous
  Country: US (occurrence: US)
  Receive Date: 20250618
  Receipt Date: 20250618
  Transmission Date: 20250716
  Serious: No
  Sender: FERRING
  Company Number: US-FERRINGPH-2025FE01045

PATIENT
  Sex: Female

DRUGS (2)
  1. REBYOTA [Suspect]
     Active Substance: DONOR HUMAN STOOL
     Indication: Product used for unknown indication
     Dosage: UNK, ONCE/SINGLE
     Route: 065
     Dates: start: 20241113, end: 20241113
  2. REBYOTA [Suspect]
     Active Substance: DONOR HUMAN STOOL
     Dosage: UNK, ONCE/SINGLE
     Route: 065
     Dates: start: 20250205, end: 20250205

REACTIONS (2)
  - Clostridium difficile infection [Recovered/Resolved]
  - Pyrexia [Recovered/Resolved]

NARRATIVE: CASE EVENT DATE: 20241114
